FAERS Safety Report 8624262-X (Version None)
Quarter: 2012Q3

REPORT INFORMATION
  Report Type: 
  Country: None (occurrence: None)
  Receive Date: 20120827
  Receipt Date: 20120814
  Transmission Date: 20120928
  Serious: Yes (Hospitalization)
  Sender: FDA-Public Use
  Company Number: CR-ELI_LILLY_AND_COMPANY-CR201207008924

PATIENT
  Age: 69 Year
  Sex: Female

DRUGS (2)
  1. EXENATIDE [Suspect]
     Dosage: 5 UG, BID
     Dates: start: 20120501
  2. LANTUS [Concomitant]

REACTIONS (7)
  - DIABETIC ENTEROPATHY [None]
  - HYPERGLYCAEMIA [None]
  - DIABETIC RETINOPATHY [None]
  - DIABETIC GASTROPARESIS [None]
  - VOMITING [None]
  - DIARRHOEA [None]
  - PROTEINURIA [None]
